FAERS Safety Report 24816048 (Version 1)
Quarter: 2025Q1

REPORT INFORMATION
  Report Type: Spontaneous
  Country: US (occurrence: US)
  Receive Date: 20250107
  Receipt Date: 20250107
  Transmission Date: 20250409
  Serious: Yes (Death, Hospitalization, Other)
  Sender: AMGEN
  Company Number: US-AMGEN-USASP2024256270

PATIENT
  Age: 70 Year
  Sex: Male

DRUGS (2)
  1. PREDNISONE [Suspect]
     Active Substance: PREDNISONE
     Indication: Autoimmune hepatitis
     Route: 065
  2. AZATHIOPRINE [Concomitant]
     Active Substance: AZATHIOPRINE
     Route: 065

REACTIONS (11)
  - Death [Fatal]
  - Bleeding varicose vein [Unknown]
  - Hepatic encephalopathy [Unknown]
  - Hepatitis [Unknown]
  - General physical health deterioration [Unknown]
  - Urinary tract infection pseudomonal [Unknown]
  - Cholangitis [Unknown]
  - Biliary dilatation [Unknown]
  - Cholestasis [Unknown]
  - Drug effective for unapproved indication [Unknown]
  - Off label use [Unknown]
